FAERS Safety Report 16650147 (Version 2)
Quarter: 2019Q3

REPORT INFORMATION
  Report Type: Spontaneous
  Country: US (occurrence: US)
  Receive Date: 20190731
  Receipt Date: 20190903
  Transmission Date: 20191004
  Serious: Yes (Hospitalization, Other)
  Sender: FDA-Public Use
  Company Number: US-ROCHE-2366255

PATIENT
  Age: 74 Year
  Sex: Female
  Weight: 131.66 kg

DRUGS (3)
  1. ACTEMRA [Suspect]
     Active Substance: TOCILIZUMAB
     Indication: TEMPORAL ARTERITIS
     Route: 042
     Dates: start: 20140801, end: 20190701
  2. ACTEMRA [Suspect]
     Active Substance: TOCILIZUMAB
     Indication: RHEUMATOID ARTHRITIS
  3. PREDNISONE. [Concomitant]
     Active Substance: PREDNISONE
     Route: 065
     Dates: start: 2015

REACTIONS (4)
  - Septic shock [Unknown]
  - Diverticular perforation [Recovering/Resolving]
  - Gastrointestinal perforation [Not Recovered/Not Resolved]
  - Diverticulitis [Recovering/Resolving]

NARRATIVE: CASE EVENT DATE: 20190719
